FAERS Safety Report 16622814 (Version 1)
Quarter: 2019Q3

REPORT INFORMATION
  Report Type: Spontaneous
  Country: US (occurrence: US)
  Receive Date: 20190723
  Receipt Date: 20190723
  Transmission Date: 20191004
  Serious: Yes (Hospitalization)
  Sender: FDA-Public Use
  Company Number: US-PERRIGO-19US008422

PATIENT
  Age: 57 Year
  Sex: Male
  Weight: 93.88 kg

DRUGS (5)
  1. TESTOSTERONE CYPIONATE. [Suspect]
     Active Substance: TESTOSTERONE CYPIONATE
     Dosage: 200 MG, WEEKLY
     Route: 030
     Dates: start: 201905, end: 20190520
  2. LISINOPRIL. [Concomitant]
     Active Substance: LISINOPRIL
     Indication: HYPERTENSION
     Dosage: UNK
     Route: 065
     Dates: start: 2007
  3. LIPID MODIFYING AGENTS [Concomitant]
     Active Substance: UNSPECIFIED INGREDIENT
     Indication: BLOOD CHOLESTEROL INCREASED
     Dosage: UNK
     Route: 065
  4. TESTOSTERONE CYPIONATE. [Suspect]
     Active Substance: TESTOSTERONE CYPIONATE
     Indication: BLOOD TESTOSTERONE DECREASED
     Dosage: UNK
     Route: 030
     Dates: start: 2007, end: 2008
  5. TESTOSTERONE CYPIONATE. [Suspect]
     Active Substance: TESTOSTERONE CYPIONATE
     Dosage: 160 MG, WEEKLY
     Route: 030
     Dates: start: 20190527, end: 20190618

REACTIONS (4)
  - Hypertension [Not Recovered/Not Resolved]
  - Atrial fibrillation [Not Recovered/Not Resolved]
  - Inappropriate schedule of product administration [Recovered/Resolved]
  - Heart rate increased [Not Recovered/Not Resolved]

NARRATIVE: CASE EVENT DATE: 2007
